FAERS Safety Report 8287524-4 (Version None)
Quarter: 2012Q2

REPORT INFORMATION
  Report Type: 
  Country: None (occurrence: None)
  Receive Date: 20120416
  Receipt Date: 20120409
  Transmission Date: 20120825
  Serious: Yes (Other)
  Sender: FDA-Public Use
  Company Number: US-COVIDIEN/TYCO HEALTHCARE/MALLINCKRODT-T201201429

PATIENT
  Sex: Female

DRUGS (1)
  1. PENNSAID [Suspect]
     Indication: ARTHRALGIA
     Dosage: UNK, QD
     Route: 061
     Dates: start: 20120328, end: 20120330

REACTIONS (4)
  - DYSPNOEA [None]
  - SYNCOPE [None]
  - DIZZINESS [None]
  - PALPITATIONS [None]
